FAERS Safety Report 4969115-3 (Version None)
Quarter: 2006Q2

REPORT INFORMATION
  Report Type: 
  Country: None (occurrence: None)
  Receive Date: 20060411
  Receipt Date: 20050303
  Transmission Date: 20061013
  Serious: Yes (Other)
  Sender: FDA-Public Use
  Company Number: US-BRISTOL-MYERS SQUIBB COMPANY-12891370

PATIENT
  Age: 75 Year
  Sex: Male
  Weight: 76 kg

DRUGS (7)
  1. CARBOPLATIN [Suspect]
     Indication: LUNG CARCINOMA CELL TYPE UNSPECIFIED STAGE IV
     Route: 042
     Dates: start: 20050217, end: 20050217
  2. TAXOL [Concomitant]
     Route: 042
  3. RADIATION THERAPY [Concomitant]
     Indication: LUNG CARCINOMA CELL TYPE UNSPECIFIED STAGE IV
  4. BENADRYL [Concomitant]
     Indication: PREMEDICATION
     Dates: start: 20050217, end: 20050217
  5. DECADRON [Concomitant]
     Indication: PREMEDICATION
     Dates: start: 20050217, end: 20050217
  6. TAGAMET [Concomitant]
     Indication: PREMEDICATION
     Dates: start: 20050217, end: 20050217
  7. ZOFRAN [Concomitant]
     Indication: PREMEDICATION
     Dates: start: 20050217, end: 20050217

REACTIONS (1)
  - HYPERSENSITIVITY [None]
